FAERS Safety Report 25479305 (Version 1)
Quarter: 2025Q2

REPORT INFORMATION
  Report Type: Spontaneous
  Country: CN (occurrence: CN)
  Receive Date: 20250625
  Receipt Date: 20250625
  Transmission Date: 20250716
  Serious: Yes (Life-Threatening, Other)
  Sender: JOHNSON AND JOHNSON
  Company Number: CN-JNJFOC-20250627318

PATIENT
  Age: 61 Year
  Sex: Female

DRUGS (12)
  1. DARATUMUMAB [Suspect]
     Active Substance: DARATUMUMAB
     Indication: Plasma cell myeloma
     Dosage: HALVED DOSAGE, 16MG/KG WEEKLY, 700MG ON DAYS 1, 8,15, AND 22 TWO CYCLES
     Route: 065
     Dates: start: 2023
  2. DARATUMUMAB [Suspect]
     Active Substance: DARATUMUMAB
     Indication: Plasma cell myeloma
  3. CISPLATIN [Suspect]
     Active Substance: CISPLATIN
     Indication: Plasma cell myeloma
     Dosage: HALVED DOSAGE:  ON DAYS 1-4 TWO CYCLES
     Route: 065
     Dates: start: 2023, end: 2023
  4. CISPLATIN [Suspect]
     Active Substance: CISPLATIN
     Indication: Plasma cell myeloma
  5. DEXAMETHASONE [Suspect]
     Active Substance: DEXAMETHASONE
     Indication: Plasma cell myeloma
     Dosage: HALVED DOSAGE, 20 MG ON DAYS 1-4, 8-9, AND 15-16 TWO CYCLES
     Route: 065
     Dates: start: 2023, end: 2023
  6. DEXAMETHASONE [Suspect]
     Active Substance: DEXAMETHASONE
     Indication: Plasma cell myeloma
  7. ETOPOSIDE [Suspect]
     Active Substance: ETOPOSIDE
     Indication: Plasma cell myeloma
     Dosage: HALVED DOSAGE, 40 MG ON DAYS 1-4 TWO CYCLES
     Route: 065
     Dates: start: 2023, end: 2023
  8. ETOPOSIDE [Suspect]
     Active Substance: ETOPOSIDE
     Indication: Plasma cell myeloma
  9. CARFILZOMIB [Suspect]
     Active Substance: CARFILZOMIB
     Indication: Plasma cell myeloma refractory
     Dosage: HALVED DOSAGE, 20MG/M2 ON DAYS 1-2, 27MG/M2 ON DAYS 8-9, 15-16 TWO CYCLES
     Route: 065
     Dates: start: 2023, end: 2023
  10. CARFILZOMIB [Suspect]
     Active Substance: CARFILZOMIB
     Indication: Plasma cell myeloma
     Dosage: HALVED DOSAGE, 20MG/M2 ON DAYS 1-2, 27MG/M2 ON DAYS 8-9, 15-16 TWO CYCLES
     Dates: start: 2023, end: 2023
  11. CYCLOPHOSPHAMIDE [Suspect]
     Active Substance: CYCLOPHOSPHAMIDE
     Indication: Plasma cell myeloma
     Dosage: HALVED DOSAGE ON DAYS 1-4 TWO CYCLES
     Route: 065
     Dates: start: 2023, end: 2023
  12. CYCLOPHOSPHAMIDE [Suspect]
     Active Substance: CYCLOPHOSPHAMIDE
     Indication: Plasma cell myeloma

REACTIONS (2)
  - Neutropenia [Recovered/Resolved]
  - Febrile neutropenia [Unknown]

NARRATIVE: CASE EVENT DATE: 20230101
